FAERS Safety Report 7220138-3 (Version None)
Quarter: 2011Q1

REPORT INFORMATION
  Report Type: 
  Country: None (occurrence: None)
  Receive Date: 20110111
  Receipt Date: 20110104
  Transmission Date: 20110831
  Serious: Yes (Other)
  Sender: FDA-Public Use
  Company Number: US-JNJFOC-20101002954

PATIENT
  Sex: Male
  Weight: 75.3 kg

DRUGS (8)
  1. REMICADE [Suspect]
     Dosage: WAS ON 5MG/KG REMICADE FOR ONE YEAR AND STOPPED IN JAN-2010. RESTARTED 10MG/KG ON 01-OCT-2010.
     Route: 042
  2. TYLENOL [Concomitant]
     Indication: PREMEDICATION
     Route: 065
  3. REMICADE [Suspect]
     Route: 042
  4. REMICADE [Suspect]
     Route: 042
  5. BENADRYL [Concomitant]
     Indication: PREMEDICATION
     Route: 065
  6. STEROIDS NOS [Concomitant]
     Indication: PREMEDICATION
     Route: 065
  7. REMICADE [Suspect]
     Route: 042
  8. REMICADE [Suspect]
     Indication: CROHN'S DISEASE
     Route: 042

REACTIONS (6)
  - VOMITING [None]
  - THROAT IRRITATION [None]
  - URTICARIA [None]
  - INFUSION RELATED REACTION [None]
  - RASH PRURITIC [None]
  - DRUG INEFFECTIVE [None]
